FAERS Safety Report 16951674 (Version 1)
Quarter: 2019Q4

REPORT INFORMATION
  Report Type: Spontaneous
  Country: US (occurrence: US)
  Receive Date: 20191023
  Receipt Date: 20191023
  Transmission Date: 20200122
  Serious: No
  Sender: FDA-Public Use
  Company Number: US-APOTEX-2019AP023855

PATIENT
  Age: 11 Year
  Sex: Female

DRUGS (5)
  1. LEVALBUTEROL                       /01419301/ [Suspect]
     Active Substance: LEVALBUTEROL
     Indication: ASTHMA
     Dosage: UNK
     Route: 065
  2. LEVALBUTEROL                       /01419301/ [Suspect]
     Active Substance: LEVALBUTEROL
     Indication: ASTHMA EXERCISE INDUCED
  3. MONTELUKAST [Concomitant]
     Active Substance: MONTELUKAST SODIUM
     Indication: ASTHMA
     Dosage: UNK
     Route: 065
  4. ALBUTEROL. [Suspect]
     Active Substance: ALBUTEROL
     Indication: ASTHMA
     Dosage: UNK, PRN
     Route: 065
  5. MONTELUKAST [Concomitant]
     Active Substance: MONTELUKAST SODIUM
     Indication: ASTHMA EXERCISE INDUCED

REACTIONS (9)
  - Abnormal behaviour [Unknown]
  - Reaction to excipient [Unknown]
  - Treatment failure [Unknown]
  - Delusion [Unknown]
  - Paranoia [Unknown]
  - Bronchospasm paradoxical [Recovering/Resolving]
  - Paradoxical drug reaction [Unknown]
  - Mood altered [Unknown]
  - Anxiety [Unknown]
